FAERS Safety Report 12729316 (Version 1)
Quarter: 2016Q3

REPORT INFORMATION
  Report Type: Report from Study
  Country: US (occurrence: US)
  Receive Date: 20160909
  Receipt Date: 20160909
  Transmission Date: 20161109
  Serious: Yes (Life-Threatening, Hospitalization, Other)
  Sender: FDA-Public Use
  Company Number: US-MALLINCKRODT-T201603995

PATIENT
  Age: 35 Year
  Sex: Male
  Weight: 81 kg

DRUGS (42)
  1. FENTANYL TRANSDERMAL SYSTEM [Suspect]
     Active Substance: FENTANYL
     Indication: PAIN
     Dosage: 50, QD
     Route: 062
     Dates: start: 20141126, end: 20141225
  2. FENTANYL TRANSDERMAL SYSTEM [Suspect]
     Active Substance: FENTANYL
     Indication: PAIN OF SKIN
     Dosage: 50
     Route: 062
     Dates: start: 20150225
  3. FENTANYL TRANSDERMAL SYSTEM [Suspect]
     Active Substance: FENTANYL
     Dosage: 50 MG
     Route: 062
     Dates: start: 20150702
  4. BERAPROST SODIUM (PLACEBO) [Suspect]
     Active Substance: BERAPROST SODIUM
     Indication: PULMONARY ARTERIAL HYPERTENSION
     Dosage: 120 ?G TOTAL DAILY DOSE
     Route: 048
     Dates: start: 20141113
  5. COLLAGENASE SANTYL [Concomitant]
     Active Substance: COLLAGENASE CLOSTRIDIUM HISTOLYTICUM
     Indication: SKIN ULCER
     Dosage: 1 G
     Route: 061
     Dates: start: 20110811, end: 20150112
  6. AMBIEN [Concomitant]
     Active Substance: ZOLPIDEM TARTRATE
     Dosage: 5 MG TOTAL DAILY DOSE
     Route: 048
     Dates: start: 20140801
  7. PRINIVIL [Concomitant]
     Active Substance: LISINOPRIL
     Indication: HYPERTENSION
     Dosage: 20 MG TOTAL DAILY DOSE
     Route: 048
  8. CYTOXAN [Suspect]
     Active Substance: CYCLOPHOSPHAMIDE
     Indication: SCLERODERMA
     Dosage: 1000 MG TOTAL DAILY DOSE
     Route: 042
     Dates: start: 20141230
  9. MULTIVITAMIN [Concomitant]
     Active Substance: VITAMINS
     Indication: PROPHYLAXIS
     Dosage: 1 DF, QD
     Route: 048
     Dates: start: 2004
  10. VITAMIN D [Concomitant]
     Active Substance: CHOLECALCIFEROL
     Indication: PROPHYLAXIS
     Dosage: 1000 IU, QD
     Route: 048
     Dates: start: 201305
  11. LISINOPRIL. [Concomitant]
     Active Substance: LISINOPRIL
     Dosage: UNK
     Dates: start: 20150101
  12. MUPIROCIN. [Concomitant]
     Active Substance: MUPIROCIN
     Indication: SKIN ULCER
     Dosage: 1 G
     Route: 061
     Dates: start: 20140811, end: 20150112
  13. VITAMIN D3 [Concomitant]
     Active Substance: CHOLECALCIFEROL
     Dosage: 1000 MG TOTAL DAILY DOSE
     Route: 048
     Dates: start: 20140201
  14. LUCENTIS [Concomitant]
     Active Substance: RANIBIZUMAB
     Indication: MACULAR OEDEMA
     Dosage: 0.5 MG, PRN
     Route: 065
     Dates: start: 20140710
  15. BERAPROST SODIUM (PLACEBO) [Suspect]
     Active Substance: BERAPROST SODIUM
     Dosage: UNK
     Dates: start: 20141127
  16. SULFAMETHOXAZOLE AND TRIMETHOPRIM [Concomitant]
     Active Substance: SULFAMETHOXAZOLE\TRIMETHOPRIM
     Indication: IMMUNOSUPPRESSION
     Dosage: 800 MG, 3 TIMES PER WK (80/160 MG TOTAL DAILY DOSE)
     Route: 048
     Dates: start: 20141211
  17. POLYMYXIN B -TRIMETHOPRIM OPHTHA. [Concomitant]
     Indication: INTRAOCULAR PRESSURE TEST ABNORMAL
     Dosage: 1
     Route: 047
     Dates: start: 20141213, end: 20150112
  18. FOSAMAX [Concomitant]
     Active Substance: ALENDRONATE SODIUM
     Dosage: 70 MG TOTAL DAILY DOSE
     Route: 048
     Dates: start: 20141001
  19. TYVASO [Suspect]
     Active Substance: TREPROSTINIL
     Dosage: 54 ?G, TOTAL DAILY DOSE
     Dates: start: 201401
  20. LISINOPRIL. [Concomitant]
     Active Substance: LISINOPRIL
     Indication: HYPERTENSION
     Dosage: UNK
     Dates: start: 20141112
  21. PREDNISONE. [Concomitant]
     Active Substance: PREDNISONE
     Dosage: UNK
     Dates: start: 20150103
  22. RITUXIMAB [Concomitant]
     Active Substance: RITUXIMAB
     Indication: COLLAGEN DISORDER
     Dosage: 1000 MG EVERY 4-6 TOTAL DAILY DOSE
     Route: 051
     Dates: start: 20140923, end: 20150903
  23. LEXAPRO [Concomitant]
     Active Substance: ESCITALOPRAM OXALATE
     Indication: ANTIDEPRESSANT THERAPY
     Dosage: 10 MG TOTAL DAILY DOSE
     Route: 048
     Dates: start: 20140910
  24. KLOR-CON [Concomitant]
     Active Substance: POTASSIUM CHLORIDE
     Dosage: 20 MG, QD
     Route: 048
     Dates: start: 20141001, end: 20150101
  25. LISINOPRIL. [Concomitant]
     Active Substance: LISINOPRIL
     Dosage: UNK
     Dates: start: 20141221, end: 20141231
  26. PREDNISONE. [Concomitant]
     Active Substance: PREDNISONE
     Dosage: UNK
     Dates: start: 20150131
  27. LEXAPRO [Concomitant]
     Active Substance: ESCITALOPRAM OXALATE
     Indication: ANXIETY
  28. PREDNISONE. [Concomitant]
     Active Substance: PREDNISONE
     Dosage: 10 MG TOTAL DAILY DOSE
     Route: 048
     Dates: start: 20151228
  29. ADCIRCA [Concomitant]
     Active Substance: TADALAFIL
     Indication: PULMONARY ARTERIAL HYPERTENSION
     Dosage: 40 MG TOTAL DAILY DOSE
     Route: 048
     Dates: start: 20130927
  30. OPSUMIT [Concomitant]
     Active Substance: MACITENTAN
     Indication: PULMONARY ARTERIAL HYPERTENSION
     Dosage: 10 MG TOTAL DAILY DOSE
     Route: 048
     Dates: start: 20140224
  31. MVI [Concomitant]
     Active Substance: VITAMINS
     Dosage: 1 TABLET TOTAL DAILY DOSE
     Route: 048
     Dates: start: 200401
  32. FISH OIL [Concomitant]
     Active Substance: FISH OIL
     Dosage: 1400 MG TOTAL DAILY DOSE
     Route: 048
     Dates: start: 20140101
  33. LIDOCAINE W/TETRACAINE [Concomitant]
     Active Substance: LIDOCAINE\TETRACAINE
     Indication: SCROTAL ULCER
     Dosage: 1 G, PRN
     Route: 061
     Dates: start: 20140701, end: 20150112
  34. LISINOPRIL. [Concomitant]
     Active Substance: LISINOPRIL
     Dosage: 10 MG TOTAL DAILY DOSE
     Route: 048
     Dates: start: 20150109
  35. CAPTOPRIL. [Concomitant]
     Active Substance: CAPTOPRIL
     Indication: HYPERTENSION
     Dosage: 25 MG TOTAL DAILY DOSE
     Route: 048
     Dates: start: 20141125
  36. LASIX [Concomitant]
     Active Substance: FUROSEMIDE
     Indication: PULMONARY HYPERTENSION
     Dosage: 20 MG, QD
     Route: 048
     Dates: start: 20141008, end: 20150101
  37. TYVASO [Suspect]
     Active Substance: TREPROSTINIL
     Indication: PULMONARY ARTERIAL HYPERTENSION
     Dosage: 54 ?G (9 BREATHS), QID
     Dates: start: 20131219
  38. CYTOXAN [Suspect]
     Active Substance: CYCLOPHOSPHAMIDE
     Indication: VASCULITIS
     Dosage: 750 MG, SINGLE
     Route: 042
     Dates: start: 20141202, end: 20141202
  39. CYTOXAN [Suspect]
     Active Substance: CYCLOPHOSPHAMIDE
     Dosage: 900 MG TOTAL DAILY DOSE
     Route: 042
     Dates: start: 20150309
  40. CYTOXAN [Suspect]
     Active Substance: CYCLOPHOSPHAMIDE
     Dosage: 850 MG, SINGLE
     Route: 042
     Dates: start: 20151028, end: 20151028
  41. PREDNISONE. [Concomitant]
     Active Substance: PREDNISONE
     Indication: SCLERODERMA
     Dosage: UNK
     Dates: start: 20141220, end: 20150102
  42. ASPIRIN. [Concomitant]
     Active Substance: ASPIRIN
     Dosage: 81 MG TOTAL DAILY DOSE
     Route: 048
     Dates: start: 20140801

REACTIONS (17)
  - Blood urine present [Recovering/Resolving]
  - White blood cell count decreased [Recovering/Resolving]
  - Fatigue [Unknown]
  - Eye inflammation [Recovered/Resolved]
  - Cellulitis [Unknown]
  - Diarrhoea [Recovered/Resolved]
  - Periorbital cellulitis [Recovered/Resolved]
  - Acute respiratory failure [Unknown]
  - Ocular vascular disorder [Unknown]
  - Clostridium difficile infection [Recovered/Resolved]
  - Asthenia [Recovered/Resolved]
  - Platelet count decreased [None]
  - Septic shock [Unknown]
  - Respiratory tract infection [Unknown]
  - Blood phosphorus decreased [Unknown]
  - Weight decreased [Recovered/Resolved]
  - Pleuritic pain [Unknown]

NARRATIVE: CASE EVENT DATE: 201501
